FAERS Safety Report 16179739 (Version 1)
Quarter: 2019Q2

REPORT INFORMATION
  Report Type: Spontaneous
  Country: US (occurrence: US)
  Receive Date: 20190410
  Receipt Date: 20190410
  Transmission Date: 20190711
  Serious: Yes (Life-Threatening, Other)
  Sender: FDA-Public Use
  Company Number: US-PFIZER INC-2019150025

PATIENT
  Sex: Male

DRUGS (2)
  1. AMIODARONE HCL [Suspect]
     Active Substance: AMIODARONE HYDROCHLORIDE
     Indication: ATRIAL FIBRILLATION
     Dosage: 200 MG, UNK
  2. AMIODARONE [Suspect]
     Active Substance: AMIODARONE
     Dosage: 200 MG, UNK

REACTIONS (10)
  - Vision blurred [Unknown]
  - Vitreous floaters [Unknown]
  - Coordination abnormal [Unknown]
  - Optic ischaemic neuropathy [Unknown]
  - Product use in unapproved indication [Unknown]
  - Fatigue [Unknown]
  - Oedema [Unknown]
  - Blindness [Unknown]
  - Eye irritation [Unknown]
  - Dizziness [Unknown]
